FAERS Safety Report 9215217 (Version 2)
Quarter: 2013Q2

REPORT INFORMATION
  Report Type: Report from Study
  Country: US (occurrence: US)
  Receive Date: 20130405
  Receipt Date: 20130418
  Transmission Date: 20140414
  Serious: Yes (Hospitalization, Other)
  Sender: FDA-Public Use
  Company Number: US-ABBOTT-13P-163-1069931-00

PATIENT
  Age: 67 Year
  Sex: Female

DRUGS (16)
  1. HUMIRA [Suspect]
     Indication: RHEUMATOID ARTHRITIS
  2. NIASPAN (COATED) [Suspect]
     Indication: PRODUCT USED FOR UNKNOWN INDICATION
  3. PREVPAC [Suspect]
     Indication: GASTROINTESTINAL BACTERIAL INFECTION
     Dosage: PRESCRIBED FOR 14 DAYS
  4. METHOTREXATE [Concomitant]
     Indication: RHEUMATOID ARTHRITIS
  5. SYNTHROID [Concomitant]
     Indication: HYPOTHYROIDISM
  6. ESTRACE [Concomitant]
     Indication: PRODUCT USED FOR UNKNOWN INDICATION
  7. NEFAZODONE [Concomitant]
     Indication: DEPRESSION
  8. RISPERDAL [Concomitant]
     Indication: DEPRESSION
  9. CARBIDOPA LEVODOPA [Concomitant]
     Indication: RESTLESS LEGS SYNDROME
  10. SPIRIVA [Concomitant]
     Indication: CHRONIC OBSTRUCTIVE PULMONARY DISEASE
  11. NEURONTIN [Concomitant]
     Indication: PAIN
  12. NEURONTIN [Concomitant]
     Indication: AFFECTIVE DISORDER
  13. VITAMIN D NOS [Concomitant]
     Indication: PRODUCT USED FOR UNKNOWN INDICATION
  14. FOLIC ACID [Concomitant]
     Indication: PRODUCT USED FOR UNKNOWN INDICATION
  15. MEGA 3 [Concomitant]
     Indication: PRODUCT USED FOR UNKNOWN INDICATION
  16. CALCIUM [Concomitant]
     Indication: PRODUCT USED FOR UNKNOWN INDICATION

REACTIONS (15)
  - Nerve compression [Unknown]
  - Pain in extremity [Unknown]
  - Neck pain [Unknown]
  - Foot operation [Recovered/Resolved]
  - Foot operation [Recovered/Resolved]
  - Foot operation [Recovered/Resolved]
  - Intervertebral disc protrusion [Recovered/Resolved]
  - Gastrointestinal bacterial infection [Unknown]
  - Tongue discolouration [Not Recovered/Not Resolved]
  - Fungal infection [Unknown]
  - Arthralgia [Unknown]
  - Pain in extremity [Not Recovered/Not Resolved]
  - Musculoskeletal pain [Not Recovered/Not Resolved]
  - Neck pain [Not Recovered/Not Resolved]
  - Helicobacter infection [Recovered/Resolved]
